FAERS Safety Report 9788667 (Version 4)
Quarter: 2014Q2

REPORT INFORMATION
  Report Type: Spontaneous
  Country: FR (occurrence: FR)
  Receive Date: 20131230
  Receipt Date: 20140509
  Transmission Date: 20141212
  Serious: Yes (Hospitalization)
  Sender: FDA-Public Use
  Company Number: FR-JNJFOC-20131214824

PATIENT
  Age: 79 Year
  Sex: Male

DRUGS (7)
  1. IXPRIM [Suspect]
     Indication: MUSCULOSKELETAL PAIN
     Route: 048
     Dates: start: 20131122, end: 20131127
  2. IXPRIM [Suspect]
     Indication: PAIN IN EXTREMITY
     Route: 048
     Dates: start: 20131122, end: 20131127
  3. VOLTARENE [Suspect]
     Indication: PAIN IN EXTREMITY
     Route: 048
     Dates: start: 20131122, end: 20131127
  4. VOLTARENE [Suspect]
     Indication: MUSCULOSKELETAL PAIN
     Route: 048
     Dates: start: 20131122, end: 20131127
  5. NSAID^S [Concomitant]
     Indication: PRODUCT USED FOR UNKNOWN INDICATION
     Route: 065
  6. FENOFIBRATE [Concomitant]
     Indication: DYSLIPIDAEMIA
     Route: 048
     Dates: end: 20131127
  7. OLMETEC [Concomitant]
     Indication: HYPERTENSION
     Route: 048
     Dates: end: 20131127

REACTIONS (6)
  - Agitation [Recovered/Resolved]
  - Renal failure acute [Recovered/Resolved]
  - Hallucination [Recovered/Resolved]
  - Disorientation [Recovered/Resolved]
  - Renal tubular disorder [Recovered/Resolved]
  - Rash [Recovered/Resolved]
